FAERS Safety Report 12208285 (Version 1)
Quarter: 2016Q1

REPORT INFORMATION
  Report Type: Spontaneous
  Country: US (occurrence: US)
  Receive Date: 20160324
  Receipt Date: 20160324
  Transmission Date: 20160526
  Serious: Yes (Life-Threatening, Hospitalization)
  Sender: FDA-Public Use
  Company Number: US-HORIZON-PRE-0094-2016

PATIENT
  Age: 2 Year
  Sex: Male

DRUGS (6)
  1. VINBLASTINE [Suspect]
     Active Substance: VINBLASTINE
     Indication: CHEMOTHERAPY
  2. TACROLIMUS. [Suspect]
     Active Substance: TACROLIMUS
     Indication: IMMUNOSUPPRESSANT DRUG THERAPY
     Dosage: 10-15 NG/ML
     Route: 048
  3. PREDNISONE. [Suspect]
     Active Substance: PREDNISONE
     Indication: IMMUNOSUPPRESSANT DRUG THERAPY
     Dosage: 5 DAY PULSE EVERY 3 WEEKS FOR 4 MONTHS
  4. DACLIZUMAB [Suspect]
     Active Substance: DACLIZUMAB
     Indication: IMMUNOSUPPRESSANT DRUG THERAPY
     Dosage: TWO INFUSIONS
  5. MERCAPTOPURINE. [Suspect]
     Active Substance: MERCAPTOPURINE
     Indication: CHEMOTHERAPY
  6. CLADRIBINE. [Suspect]
     Active Substance: CLADRIBINE
     Indication: CHEMOTHERAPY
     Dosage: 10 CYCLES PRIOR TO TRANSPLANTATION
     Route: 048

REACTIONS (2)
  - Chimerism [Unknown]
  - Acute graft versus host disease [Recovered/Resolved]
